FAERS Safety Report 25514456 (Version 1)
Quarter: 2025Q3

REPORT INFORMATION
  Report Type: Spontaneous
  Country: JP (occurrence: JP)
  Receive Date: 20250703
  Receipt Date: 20250703
  Transmission Date: 20251021
  Serious: Yes (Other)
  Sender: PFIZER
  Company Number: JP-PFIZER INC-PV202500077480

PATIENT
  Age: 5 Year
  Sex: Male

DRUGS (11)
  1. CYTARABINE [Suspect]
     Active Substance: CYTARABINE
     Indication: Acute lymphocytic leukaemia
     Dates: start: 199010, end: 199011
  2. CYTARABINE [Suspect]
     Active Substance: CYTARABINE
     Dates: start: 199104, end: 199205
  3. CYTARABINE [Suspect]
     Active Substance: CYTARABINE
     Dates: start: 19920614, end: 19920621
  4. ACLARUBICIN [Concomitant]
     Active Substance: ACLARUBICIN
     Dates: start: 199010, end: 199011
  5. ETOPOSIDE [Concomitant]
     Active Substance: ETOPOSIDE
     Dates: start: 199012
  6. ETOPOSIDE [Concomitant]
     Active Substance: ETOPOSIDE
     Dates: start: 199103
  7. ETOPOSIDE [Concomitant]
     Active Substance: ETOPOSIDE
     Dates: start: 199206, end: 199206
  8. PIRARUBICIN [Concomitant]
     Active Substance: PIRARUBICIN
     Dates: start: 199012
  9. CYCLOPHOSPHAMIDE [Concomitant]
     Active Substance: CYCLOPHOSPHAMIDE
     Dates: start: 199103
  10. CYCLOPHOSPHAMIDE [Concomitant]
     Active Substance: CYCLOPHOSPHAMIDE
     Dates: start: 199206, end: 199206
  11. RANIMUSTINE [Concomitant]
     Active Substance: RANIMUSTINE
     Dates: start: 19920614, end: 19920621

REACTIONS (1)
  - Hidradenitis [Unknown]
